FAERS Safety Report 14719878 (Version 1)
Quarter: 2018Q2

REPORT INFORMATION
  Report Type: Spontaneous
  Country: IT (occurrence: IT)
  Receive Date: 20180405
  Receipt Date: 20180405
  Transmission Date: 20180711
  Serious: Yes (Other)
  Sender: FDA-Public Use
  Company Number: IT-TEVA-2018-IT-878080

PATIENT
  Age: 62 Year
  Sex: Female

DRUGS (2)
  1. LENALIDOMIDE [Concomitant]
     Active Substance: LENALIDOMIDE
     Indication: MANTLE CELL LYMPHOMA
     Dosage: 25 MG ON DAYS 1-21 OF 28-D CYCLE
     Route: 065
  2. BENDAMUSTIN HYDROCHLORIDE [Suspect]
     Active Substance: BENDAMUSTINE HYDROCHLORIDE
     Indication: MANTLE CELL LYMPHOMA
     Dosage: 90 MG/MQ ON DAYS 1-2 OF 21-D CYCLE
     Route: 042

REACTIONS (2)
  - Swelling [Recovered/Resolved]
  - Off label use [Unknown]
